FAERS Safety Report 6469003-X (Version None)
Quarter: 2009Q4

REPORT INFORMATION
  Report Type: 
  Country: None (occurrence: None)
  Receive Date: 20091203
  Receipt Date: 20091120
  Transmission Date: 20100525
  Serious: Yes (Hospitalization, Other)
  Sender: FDA-Public Use
  Company Number: PHHY2009DE01342

PATIENT
  Age: 67 Year
  Sex: Female
  Weight: 60 kg

DRUGS (11)
  1. METOPROLOL TARTRATE [Suspect]
     Indication: HYPERTENSION
     Dosage: 50 MG, 2 IN 2 DAY
     Route: 048
     Dates: start: 20000101
  2. METOPROLOL TARTRATE [Suspect]
     Dosage: UNK
  3. BLOPRESS PLUS [Suspect]
     Indication: HYPERTENSION
     Dosage: 16/12.5 MG, ONCE/SINGLE
     Route: 048
     Dates: start: 20000101, end: 20081016
  4. ASPIRIN [Concomitant]
     Indication: THROMBOSIS PROPHYLAXIS
     Dosage: 100 MG, QD
     Route: 048
     Dates: start: 20040101
  5. GLUCOBAY [Concomitant]
     Indication: TYPE 2 DIABETES MELLITUS
     Dosage: 50 MG, 2 IN 1 DAY
     Route: 048
     Dates: start: 20020101
  6. IBUPROFEN TABLETS [Concomitant]
     Indication: ARTHRALGIA
     Dosage: 400 MG, UNK
     Route: 048
     Dates: start: 20070801
  7. LACOPHTAL [Concomitant]
     Indication: DRY EYE
     Dosage: 1 DF, 3 IN 1 DAYS
     Route: 003
     Dates: start: 20050101
  8. LEVOPAR [Concomitant]
     Indication: RESTLESS LEGS SYNDROME
     Dosage: 125 MG, QD
     Route: 048
     Dates: start: 20040101
  9. PARACETAMOL [Concomitant]
     Indication: MIGRAINE
     Dosage: 500 MG, UNK
     Route: 048
     Dates: start: 20050101
  10. SIMVASTATIN [Concomitant]
     Indication: HYPERLIPIDAEMIA
     Dosage: 5 MG, QD
     Route: 048
     Dates: start: 20050101
  11. TRAVATAN [Concomitant]
     Indication: CATARACT
     Dosage: 2 DF, QD
     Route: 003
     Dates: start: 20050101

REACTIONS (11)
  - ASPARTATE AMINOTRANSFERASE INCREASED [None]
  - BLOOD CALCIUM INCREASED [None]
  - BLOOD PRESSURE DECREASED [None]
  - CEREBROVASCULAR DISORDER [None]
  - DEMYELINATION [None]
  - DIZZINESS [None]
  - ENLARGED CEREBRAL PERIVASCULAR SPACES [None]
  - GLYCOSYLATED HAEMOGLOBIN [None]
  - HYPOTENSION [None]
  - PROTHROMBIN TIME PROLONGED [None]
  - SPINAL OSTEOARTHRITIS [None]
